FAERS Safety Report 4375136-4 (Version None)
Quarter: 2004Q2

REPORT INFORMATION
  Report Type: 
  Country: None (occurrence: None)
  Receive Date: 20040603
  Receipt Date: 20040518
  Transmission Date: 20050107
  Serious: Yes (Hospitalization)
  Sender: FDA-Public Use
  Company Number: JP-JNJFOC-20040504231

PATIENT
  Age: 49 Year
  Sex: Female
  Weight: 45.7 kg

DRUGS (14)
  1. REMICADE [Suspect]
     Indication: RHEUMATOID ARTHRITIS
     Dosage: 3 MG/KG, 1 IN 1 AS NECESSARY, INTRAVENOUS DRIP
     Route: 041
     Dates: start: 20030807, end: 20030807
  2. REMICADE [Suspect]
     Indication: RHEUMATOID ARTHRITIS
     Dosage: 3 MG/KG, 1 IN 1 AS NECESSARY, INTRAVENOUS DRIP
     Route: 041
     Dates: start: 20030821, end: 20030821
  3. REMICADE [Suspect]
     Indication: RHEUMATOID ARTHRITIS
     Dosage: 3 MG/KG, 1 IN 1 AS NECESSARY, INTRAVENOUS DRIP
     Route: 041
     Dates: start: 20030918, end: 20030918
  4. REMICADE [Suspect]
     Indication: RHEUMATOID ARTHRITIS
     Dosage: 3 MG/KG, 1 IN 1 AS NECESSARY, INTRAVENOUS DRIP
     Route: 041
     Dates: start: 20040108, end: 20040108
  5. REMICADE [Suspect]
     Indication: RHEUMATOID ARTHRITIS
     Dosage: 3 MG/KG, 1 IN 1 AS NECESSARY, INTRAVENOUS DRIP
     Route: 041
     Dates: start: 20040205, end: 20040205
  6. REMICADE [Suspect]
     Indication: RHEUMATOID ARTHRITIS
     Dosage: 3 MG/KG, 1 IN 1 AS NECESSARY, INTRAVENOUS DRIP
     Route: 041
     Dates: start: 20040329, end: 20040329
  7. RHEUMATREX [Suspect]
     Indication: RHEUMATOID ARTHRITIS
     Dosage: 6 MG, IN 1 WEEK, ORAL
     Route: 048
     Dates: start: 20030807
  8. PREDNISOLONE [Suspect]
     Indication: RHEUMATOID ARTHRITIS
     Dosage: 7 MG, IN 1 DAY, ORAL/6 MH=G,IN 1 ADAY,ORAL/5 MG , IN 1 DAY,ORAL
     Route: 048
     Dates: start: 20030821, end: 20040109
  9. PREDNISOLONE [Suspect]
     Indication: RHEUMATOID ARTHRITIS
     Dosage: 7 MG, IN 1 DAY, ORAL/6 MH=G,IN 1 ADAY,ORAL/5 MG , IN 1 DAY,ORAL
     Route: 048
     Dates: start: 20040110, end: 20040430
  10. PREDNISOLONE [Suspect]
     Indication: RHEUMATOID ARTHRITIS
     Dosage: 7 MG, IN 1 DAY, ORAL/6 MH=G,IN 1 ADAY,ORAL/5 MG , IN 1 DAY,ORAL
     Route: 048
     Dates: start: 20040110
  11. CARFENIL (LOBENZARIT SODIUM) TABLETS [Suspect]
     Indication: RHEUMATOID ARTHRITIS
     Dosage: 80 MG, IN 1 DAY, ORAL
     Route: 048
     Dates: start: 20040110, end: 20040430
  12. VOLTAREN-XR [Suspect]
     Indication: RHEUMATOID ARTHRITIS
     Dosage: 75 MG, IN 1 DAY, ORAL;
     Route: 048
     Dates: start: 20030807
  13. FOLIAMIN (FOLIC ACID) TABLETS [Suspect]
     Dosage: 9 MG, IN 1 DAY, ORAL
     Route: 048
     Dates: start: 20030807
  14. METHOTREXATE [Concomitant]

REACTIONS (5)
  - COUGH [None]
  - DRUG INEFFECTIVE [None]
  - DRUG INTERACTION [None]
  - MYCOPLASMA SEROLOGY POSITIVE [None]
  - NASOPHARYNGITIS [None]
